FAERS Safety Report 9165099 (Version 2)
Quarter: 2013Q4

REPORT INFORMATION
  Report Type: Spontaneous
  Country: GR (occurrence: GR)
  Receive Date: 20130315
  Receipt Date: 20131211
  Transmission Date: 20140711
  Serious: Yes (Hospitalization, Other)
  Sender: FDA-Public Use
  Company Number: GR-PFIZER INC-2013086335

PATIENT
  Age: 52 Year
  Sex: Male

DRUGS (4)
  1. AMIODARONE HCL [Suspect]
     Indication: ARRHYTHMIA
     Dosage: UNK
     Route: 065
  2. SOTALOL [Concomitant]
     Indication: TACHYARRHYTHMIA
     Dosage: UNK
  3. PROPAFENONE [Concomitant]
     Indication: TACHYARRHYTHMIA
     Dosage: UNK
  4. WARFARIN [Concomitant]
     Indication: CEREBROVASCULAR ACCIDENT PROPHYLAXIS
     Dosage: UNK

REACTIONS (3)
  - Hyperthyroidism [Recovered/Resolved]
  - Cardiomyopathy [Recovered/Resolved]
  - Tachycardia [Recovered/Resolved]
